FAERS Safety Report 4324754-8 (Version None)
Quarter: 2004Q1

REPORT INFORMATION
  Report Type: 
  Country: None (occurrence: None)
  Receive Date: 20040326
  Receipt Date: 20040316
  Transmission Date: 20041129
  Serious: Yes (Life-Threatening, Hospitalization)
  Sender: FDA-Public Use
  Company Number: WAES 0403FRA00071

PATIENT
  Age: 36 Year
  Sex: Male

DRUGS (5)
  1. ACETAMINOPHEN [Concomitant]
     Indication: SCIATICA
     Route: 042
     Dates: start: 20040116
  2. KETOPROFEN [Suspect]
     Indication: SCIATICA
     Dates: start: 20040116, end: 20040117
  3. MORPHINE [Concomitant]
     Indication: SCIATICA
     Dates: start: 20040116
  4. OMEPRAZOLE [Concomitant]
     Indication: PROPHYLAXIS AGAINST GASTROINTESTINAL ULCER
     Route: 048
     Dates: start: 20040116
  5. VIOXX [Suspect]
     Indication: SCIATICA
     Route: 048
     Dates: end: 20040117

REACTIONS (8)
  - ABDOMINAL ADHESIONS [None]
  - GASTRIC ULCER PERFORATION [None]
  - INTESTINAL OBSTRUCTION [None]
  - PERITONITIS [None]
  - PNEUMONIA [None]
  - POST PROCEDURAL COMPLICATION [None]
  - SCIATICA [None]
  - SEPTIC SHOCK [None]
